FAERS Safety Report 9060929 (Version 1)
Quarter: 2013Q1

REPORT INFORMATION
  Report Type: Spontaneous
  Country: IN (occurrence: IN)
  Receive Date: 20130212
  Receipt Date: 20130212
  Transmission Date: 20140127
  Serious: Yes (Other)
  Sender: FDA-Public Use
  Company Number: PHHY2011IN117702

PATIENT
  Age: 37 Year
  Sex: Male

DRUGS (15)
  1. GLIVEC [Suspect]
     Indication: CHRONIC MYELOID LEUKAEMIA
     Dosage: 400 MG, UNK
     Dates: start: 20030716
  2. GLIVEC [Suspect]
     Dosage: 400 MG, UNK
     Dates: start: 20040116
  3. GLIVEC [Suspect]
     Dosage: 600 MG, UNK
     Dates: start: 20041225
  4. GLIVEC [Suspect]
     Dosage: 800 MG, UNK
     Dates: start: 20050630
  5. GLIVEC [Suspect]
     Dosage: 800 MG, UNK
     Dates: start: 20051023
  6. GLIVEC [Suspect]
     Dosage: 800 MG, UNK
     Dates: start: 20060516
  7. GLIVEC [Suspect]
     Dosage: 800 MG, UNK
     Dates: start: 20061215
  8. GLIVEC [Suspect]
     Dosage: 800 MG, UNK
     Dates: start: 20070615
  9. GLIVEC [Suspect]
     Dosage: 800 MG, UNK
     Dates: start: 20071115
  10. GLIVEC [Suspect]
     Dosage: 800 MG, UNK
     Dates: start: 20080310
  11. GLIVEC [Suspect]
     Dosage: 800 MG, UNK
     Dates: start: 20090115
  12. GLIVEC [Suspect]
     Dosage: 800 MG, UNK
     Dates: start: 20090710
  13. GLIVEC [Suspect]
     Dosage: 800 MG, UNK
     Dates: start: 20100315
  14. GLIVEC [Suspect]
     Dosage: 800 MG, UNK
     Dates: start: 20101115
  15. GLIVEC [Suspect]
     Dosage: 800 MG, UNK
     Dates: start: 20110415

REACTIONS (8)
  - Anal fissure [Unknown]
  - Fistula [Unknown]
  - Skin fragility [Unknown]
  - Vitamin D decreased [Unknown]
  - Splenomegaly [Unknown]
  - Fatigue [Unknown]
  - White blood cell count increased [Unknown]
  - Frequent bowel movements [Unknown]
